FAERS Safety Report 6747409-9 (Version None)
Quarter: 2010Q2

REPORT INFORMATION
  Report Type: 
  Country: None (occurrence: None)
  Receive Date: 20100528
  Receipt Date: 20100420
  Transmission Date: 20101027
  Serious: Yes (Hospitalization, Other)
  Sender: FDA-Public Use
  Company Number: US-BAXTER-2010BH002569

PATIENT
  Age: 58 Year
  Sex: Male
  Weight: 62 kg

DRUGS (173)
  1. HEPARIN SODIUM INJECTION [Suspect]
     Indication: CORONARY ARTERY BYPASS
     Route: 042
     Dates: start: 20071123, end: 20071123
  2. HEPARIN SODIUM INJECTION [Suspect]
     Indication: CARDIAC ANEURYSM REPAIR
     Route: 042
     Dates: start: 20071123, end: 20071123
  3. HEPARIN SODIUM INJECTION [Suspect]
     Indication: IMPLANTABLE DEFIBRILLATOR INSERTION
     Route: 042
     Dates: start: 20071123, end: 20071123
  4. HEPARIN SODIUM INJECTION [Suspect]
     Indication: ARTERIOGRAM CORONARY
     Route: 042
     Dates: start: 20071123, end: 20071123
  5. HEPARIN SODIUM INJECTION [Suspect]
     Indication: CATHETERISATION CARDIAC
     Route: 042
     Dates: start: 20071123, end: 20071123
  6. HEPARIN SODIUM INJECTION [Suspect]
     Indication: INTRAVENOUS CATHETER MANAGEMENT
     Route: 042
     Dates: start: 20071123, end: 20071123
  7. HEPARIN SODIUM INJECTION [Suspect]
     Indication: CORONARY ANGIOPLASTY
     Route: 042
     Dates: start: 20071123, end: 20071123
  8. HEPARIN SODIUM INJECTION [Suspect]
     Route: 042
     Dates: start: 20071112, end: 20071112
  9. HEPARIN SODIUM INJECTION [Suspect]
     Route: 042
     Dates: start: 20071112, end: 20071112
  10. HEPARIN SODIUM INJECTION [Suspect]
     Route: 042
     Dates: start: 20071112, end: 20071112
  11. HEPARIN SODIUM INJECTION [Suspect]
     Route: 042
     Dates: start: 20071112, end: 20071112
  12. HEPARIN SODIUM INJECTION [Suspect]
     Route: 042
     Dates: start: 20071112, end: 20071112
  13. HEPARIN SODIUM INJECTION [Suspect]
     Route: 042
     Dates: start: 20071112, end: 20071112
  14. HEPARIN SODIUM INJECTION [Suspect]
     Route: 042
     Dates: start: 20071112, end: 20071112
  15. HEPARIN SODIUM INJECTION [Suspect]
     Route: 042
     Dates: start: 20080110, end: 20080110
  16. HEPARIN SODIUM INJECTION [Suspect]
     Route: 042
     Dates: start: 20080110, end: 20080110
  17. HEPARIN SODIUM INJECTION [Suspect]
     Route: 042
     Dates: start: 20080110, end: 20080110
  18. HEPARIN SODIUM INJECTION [Suspect]
     Route: 042
     Dates: start: 20080110, end: 20080110
  19. HEPARIN SODIUM INJECTION [Suspect]
     Route: 042
     Dates: start: 20080110, end: 20080110
  20. HEPARIN SODIUM INJECTION [Suspect]
     Route: 042
     Dates: start: 20080110, end: 20080110
  21. HEPARIN SODIUM INJECTION [Suspect]
     Route: 042
     Dates: start: 20080110, end: 20080110
  22. HEPARIN SODIUM INJECTION [Suspect]
     Route: 042
     Dates: start: 20080122, end: 20080122
  23. HEPARIN SODIUM INJECTION [Suspect]
     Route: 042
     Dates: start: 20080122, end: 20080122
  24. HEPARIN SODIUM INJECTION [Suspect]
     Route: 042
     Dates: start: 20080122, end: 20080122
  25. HEPARIN SODIUM INJECTION [Suspect]
     Route: 042
     Dates: start: 20080122, end: 20080122
  26. HEPARIN SODIUM INJECTION [Suspect]
     Route: 042
     Dates: start: 20080122, end: 20080122
  27. HEPARIN SODIUM INJECTION [Suspect]
     Route: 042
     Dates: start: 20080122, end: 20080122
  28. HEPARIN SODIUM INJECTION [Suspect]
     Route: 042
     Dates: start: 20080122, end: 20080122
  29. HEPARIN SODIUM INJECTION [Suspect]
     Route: 042
     Dates: start: 20071125, end: 20071127
  30. HEPARIN SODIUM INJECTION [Suspect]
     Route: 042
     Dates: start: 20071125, end: 20071127
  31. HEPARIN SODIUM INJECTION [Suspect]
     Route: 042
     Dates: start: 20071125, end: 20071127
  32. HEPARIN SODIUM INJECTION [Suspect]
     Route: 042
     Dates: start: 20071125, end: 20071127
  33. HEPARIN SODIUM INJECTION [Suspect]
     Route: 042
     Dates: start: 20071125, end: 20071127
  34. HEPARIN SODIUM INJECTION [Suspect]
     Route: 042
     Dates: start: 20071125, end: 20071127
  35. HEPARIN SODIUM INJECTION [Suspect]
     Route: 042
     Dates: start: 20071125, end: 20071127
  36. HEPARIN SODIUM INJECTION [Suspect]
     Route: 040
     Dates: start: 20080208, end: 20080208
  37. HEPARIN SODIUM INJECTION [Suspect]
     Route: 040
     Dates: start: 20080208, end: 20080208
  38. HEPARIN SODIUM INJECTION [Suspect]
     Route: 040
     Dates: start: 20080208, end: 20080208
  39. HEPARIN SODIUM INJECTION [Suspect]
     Route: 040
     Dates: start: 20080208, end: 20080208
  40. HEPARIN SODIUM INJECTION [Suspect]
     Route: 040
     Dates: start: 20080208, end: 20080208
  41. HEPARIN SODIUM INJECTION [Suspect]
     Route: 040
     Dates: start: 20080208, end: 20080208
  42. HEPARIN SODIUM INJECTION [Suspect]
     Route: 040
     Dates: start: 20080208, end: 20080208
  43. HEPARIN SODIUM INJECTION [Suspect]
     Route: 042
     Dates: start: 20080407, end: 20080407
  44. HEPARIN SODIUM INJECTION [Suspect]
     Route: 042
     Dates: start: 20080407, end: 20080407
  45. HEPARIN SODIUM INJECTION [Suspect]
     Route: 042
     Dates: start: 20080407, end: 20080407
  46. HEPARIN SODIUM INJECTION [Suspect]
     Route: 042
     Dates: start: 20080407, end: 20080407
  47. HEPARIN SODIUM INJECTION [Suspect]
     Route: 042
     Dates: start: 20080407, end: 20080407
  48. HEPARIN SODIUM INJECTION [Suspect]
     Route: 042
     Dates: start: 20080407, end: 20080407
  49. HEPARIN SODIUM INJECTION [Suspect]
     Route: 042
     Dates: start: 20080407, end: 20080407
  50. HEPARIN SODIUM INJECTION [Suspect]
     Route: 042
     Dates: start: 20081216, end: 20081216
  51. HEPARIN SODIUM INJECTION [Suspect]
     Route: 042
     Dates: start: 20081216, end: 20081216
  52. HEPARIN SODIUM INJECTION [Suspect]
     Route: 042
     Dates: start: 20081216, end: 20081216
  53. HEPARIN SODIUM INJECTION [Suspect]
     Route: 042
     Dates: start: 20081216, end: 20081216
  54. HEPARIN SODIUM INJECTION [Suspect]
     Route: 042
     Dates: start: 20081216, end: 20081216
  55. HEPARIN SODIUM INJECTION [Suspect]
     Route: 042
     Dates: start: 20081216, end: 20081216
  56. HEPARIN SODIUM INJECTION [Suspect]
     Route: 042
     Dates: start: 20081216, end: 20081216
  57. HEPARIN SODIUM 5,000 UNITS IN DEXTROSE 5% [Suspect]
     Indication: THROMBOSIS PROPHYLAXIS
     Route: 042
     Dates: start: 20071118, end: 20071121
  58. HEPARIN SODIUM 5,000 UNITS IN DEXTROSE 5% [Suspect]
     Indication: CONTINUOUS HAEMODIAFILTRATION
     Route: 042
     Dates: start: 20071118, end: 20071121
  59. HEPARIN SODIUM 5,000 UNITS IN DEXTROSE 5% [Suspect]
     Indication: CATHETERISATION CARDIAC
     Route: 042
     Dates: start: 20071118, end: 20071121
  60. HEPARIN SODIUM 5,000 UNITS IN DEXTROSE 5% [Suspect]
     Route: 042
     Dates: start: 20071204, end: 20071204
  61. HEPARIN SODIUM 5,000 UNITS IN DEXTROSE 5% [Suspect]
     Route: 042
     Dates: start: 20071204, end: 20071204
  62. HEPARIN SODIUM 5,000 UNITS IN DEXTROSE 5% [Suspect]
     Route: 042
     Dates: start: 20071204, end: 20071204
  63. HEPARIN SODIUM 5,000 UNITS IN DEXTROSE 5% [Suspect]
     Route: 042
     Dates: start: 20071206, end: 20071206
  64. HEPARIN SODIUM 5,000 UNITS IN DEXTROSE 5% [Suspect]
     Route: 042
     Dates: start: 20071206, end: 20071206
  65. HEPARIN SODIUM 5,000 UNITS IN DEXTROSE 5% [Suspect]
     Route: 042
     Dates: start: 20071206, end: 20071206
  66. HEPARIN SODIUM 5,000 UNITS IN DEXTROSE 5% [Suspect]
     Route: 042
     Dates: start: 20071208, end: 20071208
  67. HEPARIN SODIUM 5,000 UNITS IN DEXTROSE 5% [Suspect]
     Route: 042
     Dates: start: 20071208, end: 20071208
  68. HEPARIN SODIUM 5,000 UNITS IN DEXTROSE 5% [Suspect]
     Route: 042
     Dates: start: 20071208, end: 20071208
  69. HEPARIN SODIUM 5,000 UNITS IN DEXTROSE 5% [Suspect]
     Route: 042
     Dates: start: 20080130, end: 20080202
  70. HEPARIN SODIUM 5,000 UNITS IN DEXTROSE 5% [Suspect]
     Route: 042
     Dates: start: 20080130, end: 20080202
  71. HEPARIN SODIUM 5,000 UNITS IN DEXTROSE 5% [Suspect]
     Route: 042
     Dates: start: 20080130, end: 20080202
  72. HEPARIN SODIUM 5,000 UNITS IN DEXTROSE 5% [Suspect]
     Route: 042
     Dates: start: 20080206, end: 20080211
  73. HEPARIN SODIUM 5,000 UNITS IN DEXTROSE 5% [Suspect]
     Route: 042
     Dates: start: 20080206, end: 20080211
  74. HEPARIN SODIUM 5,000 UNITS IN DEXTROSE 5% [Suspect]
     Route: 042
     Dates: start: 20080206, end: 20080211
  75. HEPARIN SODIUM 1,000 UNITS AND SODIUM CHLORIDE 0.9% [Suspect]
     Indication: INTRAVENOUS CATHETER MANAGEMENT
     Route: 042
     Dates: start: 20071124, end: 20071124
  76. HEPARIN SODIUM 1,000 UNITS AND SODIUM CHLORIDE 0.9% [Suspect]
     Indication: CONTINUOUS HAEMODIAFILTRATION
     Route: 042
     Dates: start: 20071124, end: 20071124
  77. HEPARIN SODIUM INJECTION [Suspect]
     Route: 042
     Dates: start: 20080204, end: 20080221
  78. HEPARIN SODIUM 1,000 UNITS AND SODIUM CHLORIDE 0.9% [Suspect]
     Route: 042
     Dates: start: 20071125, end: 20071127
  79. HEPARIN SODIUM 1,000 UNITS AND SODIUM CHLORIDE 0.9% [Suspect]
     Route: 042
     Dates: start: 20071214, end: 20071214
  80. ACETAMINOPHEN AND HYDROCODONE BITARTRATE [Concomitant]
     Indication: DRUG USE FOR UNKNOWN INDICATION
     Route: 065
  81. GLUCAGON [Concomitant]
     Indication: DRUG USE FOR UNKNOWN INDICATION
     Route: 065
  82. NITROGLYCERIN [Concomitant]
     Indication: DRUG USE FOR UNKNOWN INDICATION
     Route: 065
  83. COREG [Concomitant]
     Indication: DRUG USE FOR UNKNOWN INDICATION
  84. METFORMIN HYDROCHLORIDE [Concomitant]
     Indication: DRUG USE FOR UNKNOWN INDICATION
     Route: 065
  85. CARDIZEM [Concomitant]
     Indication: DRUG USE FOR UNKNOWN INDICATION
     Route: 065
  86. TOPROL-XL [Concomitant]
     Indication: DRUG USE FOR UNKNOWN INDICATION
     Route: 065
  87. BENICAR [Concomitant]
     Indication: DRUG USE FOR UNKNOWN INDICATION
     Route: 065
  88. ATROPINE SULFATE [Concomitant]
     Indication: DRUG USE FOR UNKNOWN INDICATION
     Route: 065
     Dates: start: 20071101, end: 20071201
  89. VANCOMYCIN HYDROCHLORIDE [Concomitant]
     Indication: SURGERY
     Route: 065
     Dates: start: 20071101, end: 20071201
  90. CANDESARTAN CILEXETIL [Concomitant]
     Indication: DRUG USE FOR UNKNOWN INDICATION
     Route: 065
     Dates: start: 20071101, end: 20071201
  91. ISOSORBIDE MONONITRATE [Concomitant]
     Indication: DRUG USE FOR UNKNOWN INDICATION
     Route: 065
     Dates: start: 20071101, end: 20071201
  92. THROMBOGEN [Concomitant]
     Indication: DRUG USE FOR UNKNOWN INDICATION
     Route: 061
     Dates: start: 20071101, end: 20071201
  93. CALCIUM CHLORIDE ^BIOTIKA^ [Concomitant]
     Indication: DRUG USE FOR UNKNOWN INDICATION
     Route: 065
     Dates: start: 20071101, end: 20071201
  94. AMICAR [Concomitant]
     Indication: DRUG USE FOR UNKNOWN INDICATION
     Route: 065
     Dates: start: 20071101, end: 20071201
  95. AMIODARONE [Concomitant]
     Indication: DRUG USE FOR UNKNOWN INDICATION
     Route: 065
     Dates: start: 20071101, end: 20071201
  96. EPHEDRINE [Concomitant]
     Indication: DRUG USE FOR UNKNOWN INDICATION
     Route: 065
     Dates: start: 20071101, end: 20071201
  97. EPINEPHRINE [Concomitant]
     Indication: DRUG USE FOR UNKNOWN INDICATION
     Route: 065
     Dates: start: 20071101, end: 20071201
  98. ETOMIDATE [Concomitant]
     Indication: DRUG USE FOR UNKNOWN INDICATION
     Route: 065
     Dates: start: 20071101, end: 20071201
  99. MANNITOL [Concomitant]
     Indication: DRUG USE FOR UNKNOWN INDICATION
     Route: 065
     Dates: start: 20071101, end: 20071201
  100. PANCURONIUM BROMIDE [Concomitant]
     Indication: DRUG USE FOR UNKNOWN INDICATION
     Route: 065
     Dates: start: 20071101, end: 20071201
  101. PROTAMINE SULFATE [Concomitant]
     Indication: DRUG USE FOR UNKNOWN INDICATION
     Route: 065
     Dates: start: 20071101, end: 20071201
  102. XYLOCAINE [Concomitant]
     Indication: DRUG USE FOR UNKNOWN INDICATION
     Route: 065
     Dates: start: 20071101, end: 20071201
  103. PLEGISOL [Concomitant]
     Indication: DRUG USE FOR UNKNOWN INDICATION
     Route: 065
     Dates: start: 20071101, end: 20071201
  104. FENTANYL [Concomitant]
     Indication: DRUG USE FOR UNKNOWN INDICATION
     Route: 065
     Dates: start: 20071101, end: 20071201
  105. FORANE [Concomitant]
     Indication: ANAESTHESIA
     Route: 065
     Dates: start: 20071101, end: 20071201
  106. SODIUM CHLORIDE [Concomitant]
     Indication: DRUG USE FOR UNKNOWN INDICATION
     Route: 065
     Dates: start: 20071101, end: 20071201
  107. CARDIOPLEGIC [Concomitant]
     Indication: DRUG USE FOR UNKNOWN INDICATION
     Route: 065
     Dates: start: 20071101, end: 20071201
  108. SODIUM BICARBONATE [Concomitant]
     Indication: DRUG USE FOR UNKNOWN INDICATION
     Route: 065
     Dates: start: 20071101, end: 20071201
  109. PHENYLEPHRINE [Concomitant]
     Indication: DRUG USE FOR UNKNOWN INDICATION
     Route: 065
     Dates: start: 20071101, end: 20071201
  110. VASOPRESSIN INJECTION [Concomitant]
     Indication: DRUG USE FOR UNKNOWN INDICATION
     Route: 065
     Dates: start: 20071101, end: 20071201
  111. MORPHINE SULFATE [Concomitant]
     Indication: DRUG USE FOR UNKNOWN INDICATION
     Route: 065
     Dates: start: 20071101, end: 20071201
  112. CEFEPIME [Concomitant]
     Indication: DRUG USE FOR UNKNOWN INDICATION
     Route: 065
     Dates: start: 20071101, end: 20071201
  113. CHLORHEXIDINE GLUCONATE [Concomitant]
     Indication: DRUG USE FOR UNKNOWN INDICATION
     Route: 065
     Dates: start: 20071101, end: 20071201
  114. DIGOXIN [Concomitant]
     Indication: DRUG USE FOR UNKNOWN INDICATION
     Route: 065
     Dates: start: 20071101, end: 20071201
  115. HYDROCORTISONE SODIUM SUCCINATE [Concomitant]
     Indication: DRUG USE FOR UNKNOWN INDICATION
     Route: 042
     Dates: start: 20071101, end: 20071201
  116. PANTOPRAZOLE [Concomitant]
     Indication: DRUG USE FOR UNKNOWN INDICATION
     Route: 042
     Dates: start: 20071101, end: 20071201
  117. MILRINONE [Concomitant]
     Indication: DRUG USE FOR UNKNOWN INDICATION
     Route: 065
     Dates: start: 20071101, end: 20071201
  118. PRAVASTATIN [Concomitant]
     Indication: DRUG USE FOR UNKNOWN INDICATION
     Route: 065
     Dates: start: 20071101, end: 20071201
  119. ALTACE [Concomitant]
     Indication: DRUG USE FOR UNKNOWN INDICATION
     Route: 065
     Dates: start: 20071101, end: 20071201
  120. XANAX [Concomitant]
     Indication: DRUG USE FOR UNKNOWN INDICATION
     Route: 065
     Dates: start: 20071101, end: 20071201
  121. ZOFRAN [Concomitant]
     Indication: NAUSEA
     Route: 065
     Dates: start: 20071101, end: 20071201
  122. ATIVAN [Concomitant]
     Indication: DRUG USE FOR UNKNOWN INDICATION
     Route: 065
     Dates: start: 20071101, end: 20071201
  123. ALBUTEIN [Concomitant]
     Indication: DRUG USE FOR UNKNOWN INDICATION
     Route: 042
     Dates: start: 20071101, end: 20071201
  124. HYDROCORTISONE [Concomitant]
     Indication: DRUG USE FOR UNKNOWN INDICATION
     Route: 042
     Dates: start: 20071101, end: 20071201
  125. FLUCONAZOLE [Concomitant]
     Indication: DRUG USE FOR UNKNOWN INDICATION
     Route: 042
     Dates: start: 20071101, end: 20071201
  126. ERTAPENEM [Concomitant]
     Indication: DRUG USE FOR UNKNOWN INDICATION
     Route: 042
     Dates: start: 20071101, end: 20071201
  127. VERSED [Concomitant]
     Indication: DRUG USE FOR UNKNOWN INDICATION
     Route: 042
     Dates: start: 20071101, end: 20071201
  128. DOPAMINE HCL [Concomitant]
     Indication: BLOOD PRESSURE
     Route: 065
     Dates: start: 20071101, end: 20071201
  129. ASPIRIN [Concomitant]
     Indication: DRUG USE FOR UNKNOWN INDICATION
     Route: 065
     Dates: start: 20071101, end: 20071201
  130. SOLU-MEDROL [Concomitant]
     Indication: DRUG USE FOR UNKNOWN INDICATION
     Route: 065
     Dates: start: 20071101, end: 20071201
  131. COLACE [Concomitant]
     Indication: DRUG USE FOR UNKNOWN INDICATION
     Route: 065
     Dates: start: 20071101, end: 20071201
  132. ATROVENT [Concomitant]
     Indication: RESPIRATORY DISORDER
     Route: 065
     Dates: start: 20071101, end: 20071201
  133. ALBUTEROL [Concomitant]
     Indication: RESPIRATORY DISORDER
     Route: 065
     Dates: start: 20071101, end: 20071201
  134. LANTUS [Concomitant]
     Indication: DRUG USE FOR UNKNOWN INDICATION
     Route: 065
     Dates: start: 20071101, end: 20071201
  135. PIPERACILLIN [Concomitant]
     Indication: DRUG USE FOR UNKNOWN INDICATION
     Route: 065
     Dates: start: 20071101, end: 20071201
  136. DULCOLAX [Concomitant]
     Indication: DRUG USE FOR UNKNOWN INDICATION
     Route: 065
     Dates: start: 20071101, end: 20071201
  137. DEXTRAN 40 [Concomitant]
     Indication: DRUG USE FOR UNKNOWN INDICATION
     Route: 065
     Dates: start: 20071101, end: 20071201
  138. EPOPROSTENOL SODIUM [Concomitant]
     Indication: DRUG USE FOR UNKNOWN INDICATION
     Route: 065
     Dates: start: 20071101, end: 20071201
  139. POTASSIUM CHLORIDE [Concomitant]
     Indication: DRUG USE FOR UNKNOWN INDICATION
     Route: 042
     Dates: start: 20071101, end: 20071201
  140. FACTOR VIIA [Concomitant]
     Indication: DRUG USE FOR UNKNOWN INDICATION
     Route: 065
     Dates: start: 20071101, end: 20071201
  141. TOBRAMYCIN [Concomitant]
     Indication: DRUG USE FOR UNKNOWN INDICATION
     Route: 065
     Dates: start: 20071101, end: 20071201
  142. NEURONTIN [Concomitant]
     Indication: DRUG USE FOR UNKNOWN INDICATION
     Route: 065
     Dates: start: 20080110, end: 20080115
  143. ACETAMINOPHEN W/ PROPOXYPHENE HCL [Concomitant]
     Indication: DRUG USE FOR UNKNOWN INDICATION
     Route: 065
     Dates: start: 20080110, end: 20080115
  144. FENTANYL [Concomitant]
     Route: 065
     Dates: start: 20080110, end: 20080115
  145. LASIX [Concomitant]
     Indication: DRUG USE FOR UNKNOWN INDICATION
     Route: 065
     Dates: start: 20080110, end: 20080115
  146. BENADRYL ^WARNER-LAMBERT^               /USA/ [Concomitant]
     Indication: DRUG USE FOR UNKNOWN INDICATION
     Route: 065
     Dates: start: 20080110, end: 20080115
  147. TYLENOL (CAPLET) [Concomitant]
     Indication: DRUG USE FOR UNKNOWN INDICATION
     Route: 065
     Dates: start: 20080110, end: 20080115
  148. CALCIUM MAGNESIUM ZINC [Concomitant]
     Indication: DRUG USE FOR UNKNOWN INDICATION
     Route: 065
     Dates: start: 20080110, end: 20080115
  149. PREGABALIN [Concomitant]
     Indication: DRUG USE FOR UNKNOWN INDICATION
     Route: 065
     Dates: start: 20080110, end: 20080115
  150. AMBIEN [Concomitant]
     Indication: DRUG USE FOR UNKNOWN INDICATION
     Route: 065
     Dates: start: 20080110, end: 20080115
  151. DIFLUCAN [Concomitant]
     Indication: DRUG USE FOR UNKNOWN INDICATION
     Route: 065
     Dates: start: 20080110, end: 20080115
  152. MIDAZOLAM HCL [Concomitant]
     Indication: SURGERY
     Route: 065
     Dates: start: 20080110, end: 20080115
  153. STARLIX [Concomitant]
     Indication: DRUG USE FOR UNKNOWN INDICATION
     Route: 065
     Dates: start: 20080110, end: 20080115
  154. ISOSORBIDE MONONITRATE [Concomitant]
     Route: 065
     Dates: start: 20080110, end: 20080115
  155. INSULIN [Concomitant]
     Indication: DRUG USE FOR UNKNOWN INDICATION
     Route: 065
     Dates: start: 20080110, end: 20080115
  156. AMIODARONE [Concomitant]
     Route: 065
     Dates: start: 20080130, end: 20080202
  157. K-DUR [Concomitant]
     Indication: DRUG USE FOR UNKNOWN INDICATION
     Route: 065
     Dates: start: 20080130, end: 20080202
  158. GASTROVIST [Concomitant]
     Indication: DRUG USE FOR UNKNOWN INDICATION
     Route: 065
     Dates: start: 20080130, end: 20080202
  159. METOCLOPRAMIDE [Concomitant]
     Indication: DRUG USE FOR UNKNOWN INDICATION
     Route: 065
     Dates: start: 20080130, end: 20080202
  160. PANTOPRAZOLE [Concomitant]
     Route: 065
     Dates: start: 20080130, end: 20080202
  161. LEVAQUIN [Concomitant]
     Indication: DRUG USE FOR UNKNOWN INDICATION
     Route: 065
     Dates: start: 20080130, end: 20080202
  162. MAGNESIUM SULFATE [Concomitant]
     Indication: DRUG USE FOR UNKNOWN INDICATION
     Route: 065
     Dates: start: 20080130, end: 20080202
  163. AMIODARONE [Concomitant]
     Route: 065
     Dates: start: 20080130, end: 20080202
  164. FENTANYL [Concomitant]
     Route: 065
     Dates: start: 20080130, end: 20080202
  165. MAGNESIUM OXIDE [Concomitant]
     Indication: DRUG USE FOR UNKNOWN INDICATION
     Route: 065
     Dates: start: 20080130, end: 20080202
  166. BUMETANIDE [Concomitant]
     Indication: DRUG USE FOR UNKNOWN INDICATION
     Route: 065
     Dates: start: 20080130, end: 20080202
  167. ACETAZOLAMIDE [Concomitant]
     Indication: DRUG USE FOR UNKNOWN INDICATION
     Route: 065
     Dates: start: 20080130, end: 20080202
  168. NOREPINEPHRINE [Concomitant]
     Indication: DRUG USE FOR UNKNOWN INDICATION
     Route: 065
     Dates: start: 20080130, end: 20080202
  169. GUAIFENESIN [Concomitant]
     Indication: DRUG USE FOR UNKNOWN INDICATION
     Route: 065
     Dates: start: 20080130, end: 20080202
  170. VYTORIN [Concomitant]
     Indication: DRUG USE FOR UNKNOWN INDICATION
     Route: 065
  171. MAGNESIUM SULFATE [Concomitant]
     Route: 065
  172. NAPROXEN [Concomitant]
     Indication: DRUG USE FOR UNKNOWN INDICATION
     Route: 065
  173. PAPAVERINE [Concomitant]
     Indication: DRUG USE FOR UNKNOWN INDICATION
     Route: 065

REACTIONS (35)
  - ACUTE RESPIRATORY FAILURE [None]
  - ANAEMIA [None]
  - ASTHENIA [None]
  - ATRIAL FIBRILLATION [None]
  - CARDIAC ANEURYSM [None]
  - CARDIOMEGALY [None]
  - CARDIORENAL SYNDROME [None]
  - CONFUSIONAL STATE [None]
  - DECUBITUS ULCER [None]
  - DYSPNOEA [None]
  - ENTEROBACTER PNEUMONIA [None]
  - EPISTAXIS [None]
  - GANGRENE [None]
  - GASTRIC ULCER [None]
  - GASTRITIS EROSIVE [None]
  - HAEMATEMESIS [None]
  - HYPOTENSION [None]
  - ILEUS PARALYTIC [None]
  - INCISIONAL HERNIA, OBSTRUCTIVE [None]
  - MELAENA [None]
  - MORTON'S NEUROMA [None]
  - NEUROPATHY PERIPHERAL [None]
  - PAIN IN EXTREMITY [None]
  - PERIPHERAL VASCULAR DISORDER [None]
  - PLATELET COUNT DECREASED [None]
  - PLEURAL EFFUSION [None]
  - PNEUMONIA KLEBSIELLA [None]
  - PULMONARY OEDEMA [None]
  - PYREXIA [None]
  - RENAL FAILURE ACUTE [None]
  - SEPSIS [None]
  - SKIN ULCER [None]
  - SYSTEMIC CANDIDA [None]
  - SYSTEMIC INFLAMMATORY RESPONSE SYNDROME [None]
  - VENTRICULAR TACHYCARDIA [None]
